FAERS Safety Report 10364629 (Version 1)
Quarter: 2014Q1

REPORT INFORMATION
  Report Type: Spontaneous
  Country: US (occurrence: None)
  Receive Date: 20140306
  Receipt Date: 20140306
  Transmission Date: 20141002
  Serious: Yes (Hospitalization, Other)
  Sender: FDA-Public Use
  Company Number: 163-21880-13106186

PATIENT
  Age: 71 Year
  Sex: Male

DRUGS (13)
  1. REVLIMID (LENALIDOMIDE)(25 MILLIGRAM, CAPSULES) [Suspect]
     Indication: PLASMA CELL MYELOMA
     Route: 048
     Dates: start: 200811, end: 2010
  2. ZOMETA(ZOLEDRONIC ACID)(INJECTION) [Concomitant]
  3. ACYCLOVIR(ACICLOVIR)(UNKNOWN) [Concomitant]
  4. ACETAMINOPHEN(PARACETAMOL)(TABLETS) [Concomitant]
  5. CALCIUM CARBONATE/VITAMIN D3(LEKOVIT CA)(UNKNOWN) [Concomitant]
  6. CHOLECALCIFEROL(COLECALCIFEROL)(TABLETS) [Concomitant]
  7. CIMETIDINE(CIMETIDINE)(TABLETS) [Concomitant]
  8. VITAMIN B12(CYANOOOBALAMIN)(UNKNOWN) [Concomitant]
  9. MAGNESIUM OXIDE(MAGNESIUM OXIDE)(TABLETS) [Concomitant]
  10. MULTIVITAMINS(MULTIVITAMINS)(TABLETS) [Concomitant]
  11. TAMSULOSIN HCL(TAMSULOSIN HYDROCHLORIDE)(UNKNOWN) [Concomitant]
  12. DEXAMETHASONE(DEXAMETHASONE)(UNKNOWN) [Concomitant]
  13. ASPIRIN(ACETYLSALICYLIC ACID)(UNKNOWN) [Concomitant]

REACTIONS (1)
  - Thrombosis [None]
